FAERS Safety Report 22189580 (Version 6)
Quarter: 2025Q3

REPORT INFORMATION
  Report Type: Report from Study
  Country: BR (occurrence: BR)
  Receive Date: 20230410
  Receipt Date: 20250821
  Transmission Date: 20251021
  Serious: Yes (Other)
  Sender: CELLTRION
  Company Number: BR-CELLTRION INC.-2023BR002708

PATIENT

DRUGS (11)
  1. INFLIXIMAB-DYYB [Suspect]
     Active Substance: INFLIXIMAB-DYYB
     Indication: Crohn^s disease
     Route: 042
  2. INFLIXIMAB-DYYB [Suspect]
     Active Substance: INFLIXIMAB-DYYB
     Route: 042
     Dates: end: 20240616
  3. INFLIXIMAB-DYYB [Suspect]
     Active Substance: INFLIXIMAB-DYYB
     Route: 042
     Dates: end: 20240816
  4. INFLIXIMAB-DYYB [Suspect]
     Active Substance: INFLIXIMAB-DYYB
     Route: 042
     Dates: start: 20221003
  5. TIBOLONE [Concomitant]
     Active Substance: TIBOLONE
     Route: 048
     Dates: start: 2013
  6. DEPAKOTE ER [Concomitant]
     Active Substance: DIVALPROEX SODIUM
     Indication: Depression
     Route: 048
     Dates: start: 2013
  7. ZOLPIDEM [Concomitant]
     Active Substance: ZOLPIDEM TARTRATE
     Indication: Insomnia
     Route: 048
  8. PRAMIPEXOLE [Concomitant]
     Active Substance: PRAMIPEXOLE
     Indication: Parkinsonism
     Route: 048
  9. BUPROPION HYDROCHLORIDE [Concomitant]
     Active Substance: BUPROPION HYDROCHLORIDE
     Indication: Depression
     Route: 048
  10. STABIL [PROCHLORPERAZINE MALEATE] [Concomitant]
     Indication: Parkinson^s disease
     Route: 048
  11. PIEMONTE [MONTELUKAST] [Concomitant]
     Indication: Respiratory tract haemorrhage
     Route: 048

REACTIONS (16)
  - Crohn^s disease [Recovered/Resolved]
  - Haematochezia [Unknown]
  - Malaise [Unknown]
  - Sleep disorder [Unknown]
  - Swelling [Unknown]
  - Pruritus [Unknown]
  - Fatigue [Recovered/Resolved]
  - Dyspnoea [Recovered/Resolved]
  - Somnolence [Unknown]
  - Abdominal pain [Unknown]
  - Back pain [Unknown]
  - Influenza [Unknown]
  - Therapeutic response changed [Unknown]
  - Therapy interrupted [Unknown]
  - Intentional product use issue [Unknown]
  - Intentional dose omission [Unknown]

NARRATIVE: CASE EVENT DATE: 20250811
